FAERS Safety Report 8977549 (Version 1)
Quarter: 2012Q4

REPORT INFORMATION
  Report Type: Report from Study
  Country: IT (occurrence: IT)
  Receive Date: 20121220
  Receipt Date: 20121220
  Transmission Date: 20130627
  Serious: Yes (Other)
  Sender: FDA-Public Use
  Company Number: IT-CELGENEUS-083-20785-12121159

PATIENT
  Sex: Male
  Weight: 75 kg

DRUGS (6)
  1. THALIDOMIDE [Suspect]
     Indication: MULTIPLE MYELOMA
     Dosage: 50 Milligram
     Route: 048
     Dates: start: 20080317, end: 20090218
  2. THALIDOMIDE [Suspect]
     Dosage: 50 Milligram
     Route: 048
     Dates: start: 20090218, end: 20100810
  3. VELCADE [Suspect]
     Indication: MULTIPLE MYELOMA
     Route: 065
     Dates: start: 20080317, end: 20090218
  4. VELCADE [Suspect]
     Route: 065
     Dates: start: 20090218, end: 20101003
  5. MELPHALAN [Suspect]
     Indication: MULTIPLE MYELOMA
     Route: 065
  6. PREDNISONE [Suspect]
     Indication: MULTIPLE MYELOMA
     Route: 065

REACTIONS (1)
  - Refractory anaemia with an excess of blasts [Unknown]
